FAERS Safety Report 4704776-5 (Version None)
Quarter: 2005Q2

REPORT INFORMATION
  Report Type: 
  Country: None (occurrence: None)
  Receive Date: 20050630
  Receipt Date: 20050616
  Transmission Date: 20051028
  Serious: Yes (Other)
  Sender: FDA-Public Use
  Company Number: EM2005-0296

PATIENT
  Age: 61 Year
  Sex: Male

DRUGS (4)
  1. PROLEUKIN [Suspect]
     Indication: RENAL CELL CARCINOMA STAGE UNSPECIFIED
     Dosage: 7 MIU/M3, 5X/WEEK, SUBCUTAN
     Route: 058
     Dates: start: 20030701, end: 20050101
  2. THALIDOMIDE (THALIDOMIDE) [Suspect]
     Indication: RENAL CELL CARCINOMA STAGE UNSPECIFIED
     Dosage: 200 MG, QHS, ORAL; 400 MG, QHS, ORAL
     Route: 048
     Dates: start: 20030701, end: 20050101
  3. THALIDOMIDE (THALIDOMIDE) [Suspect]
     Indication: RENAL CELL CARCINOMA STAGE UNSPECIFIED
     Dosage: 200 MG, QHS, ORAL; 400 MG, QHS, ORAL
     Route: 048
     Dates: start: 20030701, end: 20050101
  4. ACETAMINOPHEN [Concomitant]

REACTIONS (6)
  - CONSTIPATION [None]
  - DRUG TOXICITY [None]
  - FATIGUE [None]
  - FLUID RETENTION [None]
  - ILEUS PARALYTIC [None]
  - INFLUENZA LIKE ILLNESS [None]
